FAERS Safety Report 7399158-4 (Version None)
Quarter: 2011Q2

REPORT INFORMATION
  Report Type: 
  Country: None (occurrence: None)
  Receive Date: 20110407
  Receipt Date: 20110401
  Transmission Date: 20111010
  Serious: Yes (Hospitalization)
  Sender: FDA-Public Use
  Company Number: US-BRISTOL-MYERS SQUIBB COMPANY-15649700

PATIENT
  Age: 7 Decade
  Sex: Male

DRUGS (3)
  1. AVODART [Concomitant]
  2. FLOMAX [Concomitant]
  3. HYDREA [Suspect]
     Indication: PLATELET COUNT INCREASED
     Dates: start: 20090101

REACTIONS (3)
  - WEIGHT DECREASED [None]
  - ABDOMINAL PAIN [None]
  - DIARRHOEA [None]
